FAERS Safety Report 5799435-4 (Version None)
Quarter: 2008Q3

REPORT INFORMATION
  Report Type: 
  Country: None (occurrence: None)
  Receive Date: 20080702
  Receipt Date: 20080702
  Transmission Date: 20090109
  Serious: Yes (Death)
  Sender: FDA-Public Use
  Company Number: None

PATIENT
  Age: 88 Year
  Sex: Male
  Weight: 77.1115 kg

DRUGS (1)
  1. DEMADEX [Suspect]
     Dosage: 200MG PER DAY OTHER
     Route: 050
     Dates: start: 20071010, end: 20071011

REACTIONS (9)
  - CONVULSION [None]
  - ELECTROLYTE IMBALANCE [None]
  - FALL [None]
  - INCORRECT DOSE ADMINISTERED [None]
  - INJURY [None]
  - LETHARGY [None]
  - MEDICATION ERROR [None]
  - OVERDOSE [None]
  - PARALYSIS [None]
